FAERS Safety Report 23279390 (Version 1)
Quarter: 2023Q4

REPORT INFORMATION
  Report Type: Report from Study
  Country: US (occurrence: US)
  Receive Date: 20231209
  Receipt Date: 20231209
  Transmission Date: 20240110
  Serious: Yes (Hospitalization)
  Sender: FDA-Public Use
  Company Number: US-JAZZ PHARMACEUTICALS-2023-US-001807

PATIENT
  Age: 25 Year
  Sex: Male

DRUGS (24)
  1. XYWAV [Suspect]
     Active Substance: CALCIUM OXYBATE\MAGNESIUM OXYBATE\POTASSIUM OXYBATE\SODIUM OXYBATE
     Indication: Hypersomnia
     Dosage: 2.25 GRAM, BID
  2. XYWAV [Suspect]
     Active Substance: CALCIUM OXYBATE\MAGNESIUM OXYBATE\POTASSIUM OXYBATE\SODIUM OXYBATE
     Indication: Narcolepsy
     Dosage: 4.5 GRAM, BID
  3. XYWAV [Suspect]
     Active Substance: CALCIUM OXYBATE\MAGNESIUM OXYBATE\POTASSIUM OXYBATE\SODIUM OXYBATE
     Dosage: 3 GRAM, BID
  4. XYWAV [Suspect]
     Active Substance: CALCIUM OXYBATE\MAGNESIUM OXYBATE\POTASSIUM OXYBATE\SODIUM OXYBATE
     Dosage: 3.75 GRAM, BID
  5. XYWAV [Suspect]
     Active Substance: CALCIUM OXYBATE\MAGNESIUM OXYBATE\POTASSIUM OXYBATE\SODIUM OXYBATE
     Dosage: 4.5-6G BID
     Route: 048
     Dates: start: 20230901
  6. ZYRTEC [Concomitant]
     Active Substance: CETIRIZINE HYDROCHLORIDE
     Dosage: UNK
  7. EPIPEN [Concomitant]
     Active Substance: EPINEPHRINE
     Dosage: UNK
  8. PEPCID [Concomitant]
     Active Substance: FAMOTIDINE
     Dosage: UNK
  9. FLONASE [Concomitant]
     Active Substance: FLUTICASONE PROPIONATE
     Dosage: UNK
  10. TRELEGY ELLIPTA [Concomitant]
     Active Substance: FLUTICASONE FUROATE\UMECLIDINIUM BROMIDE\VILANTEROL TRIFENATATE
     Dosage: UNK
  11. FOLVITE [Concomitant]
     Active Substance: FOLIC ACID
     Dosage: UNK
  12. HUMIRA [Concomitant]
     Active Substance: ADALIMUMAB
     Dosage: UNK
  13. HYDROCORTISONE [Concomitant]
     Active Substance: HYDROCORTISONE
     Dosage: UNK
  14. MOBIC [Concomitant]
     Active Substance: MELOXICAM
     Dosage: UNK
  15. RHEUMATREX [Concomitant]
     Active Substance: METHOTREXATE SODIUM
     Dosage: UNK
  16. PROVIGIL [Concomitant]
     Active Substance: MODAFINIL
     Dosage: UNK
  17. SINGULAIR [Concomitant]
     Active Substance: MONTELUKAST SODIUM
     Dosage: UNK
  18. SUMYCIN [Concomitant]
     Active Substance: TETRACYCLINE
     Dosage: UNK
  19. UBRELVY [Concomitant]
     Active Substance: UBROGEPANT
     Dosage: UNK
  20. VENTOLIN HFA [Concomitant]
     Active Substance: ALBUTEROL SULFATE
     Dosage: UNK
  21. WAKIX [Concomitant]
     Active Substance: PITOLISANT HYDROCHLORIDE
     Dosage: UNK
     Dates: start: 20230519
  22. ORENCIA [Concomitant]
     Active Substance: ABATACEPT
  23. BREZTRI [Concomitant]
     Active Substance: BUDESONIDE\FORMOTEROL\GLYCOPYRROLATE
  24. OMEPRAZOLE [Concomitant]
     Active Substance: OMEPRAZOLE

REACTIONS (21)
  - Respiration abnormal [Unknown]
  - Eye swelling [Unknown]
  - Headache [Unknown]
  - Ocular hyperaemia [Recovered/Resolved]
  - Dyspnoea [Recovered/Resolved]
  - Oropharyngeal pain [Unknown]
  - Eye pain [Unknown]
  - Wheezing [Unknown]
  - Dry eye [Unknown]
  - Illness [Unknown]
  - Hypertension [Unknown]
  - Depression [Unknown]
  - Leukocytosis [Unknown]
  - Oesophagitis [Unknown]
  - Tension headache [Unknown]
  - Occipital neuralgia [Unknown]
  - Carpal tunnel syndrome [Unknown]
  - Pain in extremity [Unknown]
  - Gastrooesophageal reflux disease [Unknown]
  - Constipation [Unknown]
  - Vomiting [Unknown]

NARRATIVE: CASE EVENT DATE: 20230901
